FAERS Safety Report 19206035 (Version 4)
Quarter: 2021Q3

REPORT INFORMATION
  Report Type: Report from Study
  Country: GB (occurrence: GB)
  Receive Date: 20210503
  Receipt Date: 20210802
  Transmission Date: 20211014
  Serious: Yes (Other)
  Sender: FDA-Public Use
  Company Number: GB-MYLANLABS-2021M1025435

PATIENT
  Age: 53 Year
  Sex: Female

DRUGS (16)
  1. DOCETAXEL. [Suspect]
     Active Substance: DOCETAXEL
     Dosage: UNK
  2. DENOSUMAB [Suspect]
     Active Substance: DENOSUMAB
     Indication: METASTASES TO BONE
     Dosage: 120 MILLIGRAM, Q3W
     Route: 058
     Dates: start: 20151203
  3. TRASTUZUMAB. [Suspect]
     Active Substance: TRASTUZUMAB
     Indication: BREAST CANCER
     Dosage: 1071 MG, QD (LOADING DOSE 1 CYCLE PER REGIMEN)
     Route: 041
     Dates: start: 20151203, end: 20151203
  4. DENOSUMAB [Suspect]
     Active Substance: DENOSUMAB
     Dosage: UNK (FORM STRENGTH: 245 (UNIT NOT REPORTED)
  5. TRASTUZUMAB EMTANSINE [Suspect]
     Active Substance: ADO-TRASTUZUMAB EMTANSINE
     Indication: BREAST CANCER
     Dosage: 450 MILLIGRAM, Q3W
     Route: 042
     Dates: start: 20160817, end: 20161109
  6. TRASTUZUMAB EMTANSINE [Suspect]
     Active Substance: ADO-TRASTUZUMAB EMTANSINE
     Dosage: UNK
  7. DOCETAXEL. [Suspect]
     Active Substance: DOCETAXEL
     Indication: BREAST CANCER
     Dosage: 1 CYCLE PER REGIMEN
     Route: 042
     Dates: start: 20151204, end: 20151204
  8. DOCETAXEL. [Suspect]
     Active Substance: DOCETAXEL
     Dosage: 5 CYCLES PER REGIMEN, Q3W
     Route: 042
     Dates: start: 20151223, end: 20160113
  9. TRASTUZUMAB. [Suspect]
     Active Substance: TRASTUZUMAB
     Dosage: MAINTENANCE DOSE
     Route: 042
     Dates: start: 20151223, end: 20160113
  10. TRASTUZUMAB. [Suspect]
     Active Substance: TRASTUZUMAB
     Dosage: 735 MG, Q3W (MAINTENANCE DOSE)
     Route: 042
     Dates: start: 20160203
  11. PERTUZUMAB. [Suspect]
     Active Substance: PERTUZUMAB
     Indication: BREAST CANCER
     Dosage: MAINTAINENCE DOSE
     Route: 042
     Dates: start: 20151223, end: 20160720
  12. PERTUZUMAB. [Suspect]
     Active Substance: PERTUZUMAB
     Dosage: 420 MILLIGRAM, Q3W
     Route: 042
     Dates: start: 20160720
  13. DENOSUMAB [Suspect]
     Active Substance: DENOSUMAB
     Indication: BREAST CANCER
     Dosage: UNK
  14. DENOSUMAB [Suspect]
     Active Substance: DENOSUMAB
     Dosage: UNK
  15. DOCETAXEL. [Suspect]
     Active Substance: DOCETAXEL
     Dosage: 90 MILLIGRAM, Q3W, TIW
     Route: 042
     Dates: start: 20160203, end: 20160316
  16. PERTUZUMAB. [Suspect]
     Active Substance: PERTUZUMAB
     Dosage: LADING DOSE, 1 CYCLE PER REGIMEN
     Route: 042
     Dates: start: 20151203, end: 20151203

REACTIONS (13)
  - Diabetes mellitus [Not Recovered/Not Resolved]
  - Spinal pain [Recovered/Resolved]
  - Blood cholesterol increased [Unknown]
  - Migraine [Recovered/Resolved]
  - Dyspnoea [Unknown]
  - Decreased appetite [Unknown]
  - Diarrhoea [Recovered/Resolved]
  - Onychomycosis [Unknown]
  - Depressed mood [Recovered/Resolved]
  - Cough [Not Recovered/Not Resolved]
  - Nail discolouration [Unknown]
  - Vomiting [Recovered/Resolved]
  - Fatigue [Recovering/Resolving]

NARRATIVE: CASE EVENT DATE: 20151203
